FAERS Safety Report 9400416 (Version 2)
Quarter: 2013Q3

REPORT INFORMATION
  Report Type: Spontaneous
  Country: US (occurrence: US)
  Receive Date: 20130715
  Receipt Date: 20130725
  Transmission Date: 20140515
  Serious: No
  Sender: FDA-Public Use
  Company Number: US-PFIZER INC-2013205043

PATIENT
  Age: 39 Year
  Sex: Female
  Weight: 94.33 kg

DRUGS (1)
  1. HEPARIN SODIUM [Suspect]
     Indication: COAGULOPATHY
     Dosage: 500 IU/ML, 2X/DAY
     Dates: start: 20130701

REACTIONS (2)
  - Injection site erythema [Unknown]
  - Injection site pruritus [Unknown]
